FAERS Safety Report 6263060-1 (Version None)
Quarter: 2009Q3

REPORT INFORMATION
  Report Type: 
  Country: None (occurrence: None)
  Receive Date: 20090708
  Receipt Date: 20090708
  Transmission Date: 20100115
  Serious: Yes (Other)
  Sender: FDA-Public Use
  Company Number: None

PATIENT
  Sex: Female
  Weight: 77.1115 kg

DRUGS (1)
  1. LEVAQUIN [Suspect]
     Indication: BRONCHITIS
     Dosage: 500 MG ONCE DAILY
     Dates: start: 20081005

REACTIONS (5)
  - CANDIDIASIS [None]
  - MUSCLE SPASMS [None]
  - PRURITUS GENERALISED [None]
  - TENDON DISORDER [None]
  - URTICARIA [None]
